FAERS Safety Report 14073425 (Version 1)
Quarter: 2017Q4

REPORT INFORMATION
  Report Type: Spontaneous
  Country: US (occurrence: None)
  Receive Date: 20171011
  Receipt Date: 20171011
  Transmission Date: 20180321
  Serious: No
  Sender: FDA-Public Use
  Company Number: None

PATIENT

DRUGS (3)
  1. VENTOLIN [Suspect]
     Active Substance: ALBUTEROL SULFATE
     Dosage: DOSAGE FORM - AEROSOL
     Route: 055
  2. OXYMETAZOLINE HCL [Suspect]
     Active Substance: OXYMETAZOLINE HYDROCHLORIDE
     Dosage: DOSAGE FORM - SPRAY?TYPE - BOTTLE?SIZE - 1 FL. OZ
     Route: 045
  3. TRIPLE ANTIBIOTIC OINTMENT [Suspect]
     Active Substance: BACITRACIN ZINC\NEOMYCIN\NEOMYCIN SULFATE\POLYMYXIN B SULFATE
     Dosage: TYPE - TUBE
     Route: 061

REACTIONS (1)
  - Product barcode issue [None]
